FAERS Safety Report 7448173-0 (Version None)
Quarter: 2011Q2

REPORT INFORMATION
  Report Type: 
  Country: None (occurrence: None)
  Receive Date: 20110429
  Receipt Date: 20100310
  Transmission Date: 20111010
  Serious: Yes (Hospitalization)
  Sender: FDA-Public Use
  Company Number: US-ASTRAZENECA-2010SE10385

PATIENT
  Sex: Female

DRUGS (1)
  1. NEXIUM [Suspect]
     Indication: HYPERCHLORHYDRIA
     Route: 048

REACTIONS (2)
  - VITAMIN B12 DEFICIENCY [None]
  - ANAEMIA [None]
